FAERS Safety Report 20430320 (Version 1)
Quarter: 2022Q1

REPORT INFORMATION
  Report Type: Report from Study
  Country: FR (occurrence: FR)
  Receive Date: 20220204
  Receipt Date: 20220204
  Transmission Date: 20220423
  Serious: Yes (Hospitalization)
  Sender: FDA-Public Use
  Company Number: FR-SERVIER-S20005973

PATIENT

DRUGS (31)
  1. PEGASPARGASE [Suspect]
     Active Substance: PEGASPARGASE
     Indication: Acute lymphocytic leukaemia
     Dosage: 2250 IU, UNK
     Route: 042
     Dates: start: 20200408
  2. TN UNSPECIFIED [Concomitant]
     Indication: Acute lymphocytic leukaemia
     Dosage: 10 MG
     Route: 048
     Dates: start: 20200401
  3. TN UNSPECIFIED [Concomitant]
     Dosage: 10 MG
     Route: 048
     Dates: start: 20200429
  4. TN UNSPECIFIED [Concomitant]
     Indication: Acute lymphocytic leukaemia
     Dosage: 2.0 MG2.0 MG
     Route: 042
     Dates: start: 20200401
  5. TN UNSPECIFIED [Concomitant]
     Dosage: 2.0 MG
     Route: 042
  6. TN UNSPECIFIED [Concomitant]
     Dosage: 2.0 MG
     Route: 042
     Dates: start: 20200429
  7. TN UNSPECIFIED [Concomitant]
     Indication: Acute lymphocytic leukaemia
     Dosage: 50 MG
     Route: 048
     Dates: start: 20200401
  8. TN UNSPECIFIED [Concomitant]
     Dosage: 50 MG
     Route: 048
     Dates: start: 20200401
  9. TN UNSPECIFIED [Concomitant]
     Indication: Acute lymphocytic leukaemia
     Dosage: 45 MG
     Route: 048
     Dates: start: 20200408
  10. PIPERACILLIN SODIUM\TAZOBACTAM SODIUM [Concomitant]
     Active Substance: PIPERACILLIN SODIUM\TAZOBACTAM SODIUM
     Indication: Pyrexia
     Dosage: 16 UNK
     Route: 042
  11. BACTRIM [Concomitant]
     Active Substance: SULFAMETHOXAZOLE\TRIMETHOPRIM
     Indication: Infection prophylaxis
     Dosage: UNK
     Route: 048
  12. VALACYCLOVIR HYDROCHLORIDE [Concomitant]
     Active Substance: VALACYCLOVIR HYDROCHLORIDE
     Indication: Infection prophylaxis
     Dosage: 500 MG
     Route: 048
  13. TN UNSPECIFIED [Concomitant]
     Indication: Infection prophylaxis
     Dosage: 300 MG
     Route: 048
  14. TN UNSPECIFIED [Concomitant]
     Indication: Abdominal pain upper
     Dosage: 15 MG
     Route: 048
  15. TN UNSPECIFIED [Concomitant]
     Indication: Abdominal pain upper
     Dosage: 20 MG
     Route: 042
  16. PHLOROGLUCINOL [Concomitant]
     Active Substance: PHLOROGLUCINOL
     Indication: Abdominal pain
     Dosage: 80 MG
     Route: 042
  17. CEFEPIME HYDROCHLORIDE [Concomitant]
     Active Substance: CEFEPIME HYDROCHLORIDE
     Indication: Antibiotic therapy
     Dosage: 6 UNK
     Route: 042
  18. ZOVIRAX [Concomitant]
     Active Substance: ACYCLOVIR
     Indication: Infection prophylaxis
     Dosage: 1200 UNK
     Route: 042
  19. TN UNSPECIFIED [Concomitant]
     Indication: Prophylaxis of nausea and vomiting
     Dosage: 8 UNK
     Route: 042
  20. ACUPAN [Concomitant]
     Active Substance: NEFOPAM HYDROCHLORIDE
     Indication: Headache
     Dosage: 20 UNK
     Route: 042
  21. ACUPAN [Concomitant]
     Active Substance: NEFOPAM HYDROCHLORIDE
     Indication: Abdominal pain
     Dosage: 40 UNK
     Route: 042
  22. ACUPAN [Concomitant]
     Active Substance: NEFOPAM HYDROCHLORIDE
     Indication: Nausea
  23. TN UNSPECIFIED [Concomitant]
     Indication: Headache
     Dosage: 100 UNK
     Route: 042
  24. TN UNSPECIFIED [Concomitant]
     Indication: Abdominal pain
  25. TN UNSPECIFIED [Concomitant]
     Indication: Prophylaxis
     Dosage: 7500 UNK
     Route: 042
  26. ALIZAPRIDE HYDROCHLORIDE [Concomitant]
     Active Substance: ALIZAPRIDE HYDROCHLORIDE
     Indication: Nausea
     Dosage: 50 MG
     Route: 048
  27. TICLOPIDINE [Concomitant]
     Active Substance: TICLOPIDINE
     Indication: Coagulopathy
     Dosage: 1500 UI
     Route: 042
  28. TICLOPIDINE [Concomitant]
     Active Substance: TICLOPIDINE
     Dosage: 2000 UI
     Route: 042
  29. RACECADOTRIL [Concomitant]
     Active Substance: RACECADOTRIL
     Indication: Diarrhoea
     Dosage: 100 MG
     Route: 048
  30. RACECADOTRIL [Concomitant]
     Active Substance: RACECADOTRIL
     Dosage: 3.0 UNK
     Route: 048
  31. SMECTA [Concomitant]
     Active Substance: MONTMORILLONITE
     Indication: Diarrhoea
     Dosage: 3.0 UNK
     Route: 048

REACTIONS (2)
  - Diabetic ketoacidosis [Recovered/Resolved]
  - Pancreatitis necrotising [Recovering/Resolving]

NARRATIVE: CASE EVENT DATE: 20200501
